FAERS Safety Report 6054162-3 (Version None)
Quarter: 2009Q1

REPORT INFORMATION
  Report Type: 
  Country: None (occurrence: None)
  Receive Date: 20090127
  Receipt Date: 20090119
  Transmission Date: 20090719
  Serious: Yes (Other)
  Sender: FDA-Public Use
  Company Number: PR-ABBOTT-08P-131-0461760-00

PATIENT
  Sex: Male
  Weight: 81.72 kg

DRUGS (6)
  1. RITONAVIR SOFT GELATIN CAPSULES [Suspect]
     Indication: HIV INFECTION
     Route: 048
     Dates: start: 20071023, end: 20080627
  2. TMC125 [Concomitant]
     Indication: HIV INFECTION
     Route: 048
     Dates: start: 20071023, end: 20080627
  3. PREZISTA [Concomitant]
     Indication: HIV INFECTION
     Route: 048
     Dates: start: 20071023, end: 20080627
  4. URETRON DS [Concomitant]
     Indication: DRUG USE FOR UNKNOWN INDICATION
     Route: 048
     Dates: start: 20071212, end: 20071215
  5. VIREAD [Concomitant]
     Indication: HIV INFECTION
     Route: 048
     Dates: start: 20071023, end: 20080627
  6. ZIDOVUDINA AZT [Concomitant]
     Indication: HIV INFECTION
     Route: 048
     Dates: start: 20071023, end: 20080627

REACTIONS (2)
  - ALANINE AMINOTRANSFERASE INCREASED [None]
  - BLOOD LACTIC ACID INCREASED [None]
